FAERS Safety Report 6576387-0 (Version None)
Quarter: 2010Q1

REPORT INFORMATION
  Report Type: 
  Country: None (occurrence: None)
  Receive Date: 20100210
  Receipt Date: 20100201
  Transmission Date: 20100710
  Serious: Yes (Death)
  Sender: FDA-Public Use
  Company Number: CA-TYCO HEALTHCARE/MALLINCKRODT-T201000571

PATIENT
  Age: 40 Year

DRUGS (3)
  1. OXYCODONE HCL [Suspect]
     Dosage: UNK
  2. FENTANYL-100 [Suspect]
     Dosage: UNK
  3. METHADOSE [Suspect]
     Dosage: UNK

REACTIONS (1)
  - DEATH [None]
